FAERS Safety Report 9345890 (Version 2)
Quarter: 2013Q3

REPORT INFORMATION
  Report Type: Spontaneous
  Country: JP (occurrence: JP)
  Receive Date: 20130613
  Receipt Date: 20130708
  Transmission Date: 20140515
  Serious: Yes (Other)
  Sender: FDA-Public Use
  Company Number: JP-PFIZER INC-2013172773

PATIENT
  Age: 53 Year
  Sex: Female

DRUGS (1)
  1. TOVIAZ [Suspect]
     Indication: POLLAKIURIA
     Dosage: 4 MG, 1X/DAY
     Route: 048

REACTIONS (3)
  - Colitis ulcerative [Unknown]
  - Somnolence [Recovered/Resolved]
  - Malaise [Recovered/Resolved]
